FAERS Safety Report 18692140 (Version 3)
Quarter: 2021Q1

REPORT INFORMATION
  Report Type: Report from Study
  Country: US (occurrence: US)
  Receive Date: 20210102
  Receipt Date: 20210226
  Transmission Date: 20210419
  Serious: Yes (Other)
  Sender: FDA-Public Use
  Company Number: NVSC2020US340075

PATIENT
  Age: 47 Year
  Sex: Male

DRUGS (1)
  1. ENTRESTO [Suspect]
     Active Substance: SACUBITRIL\VALSARTAN
     Indication: PRODUCT USED FOR UNKNOWN INDICATION
     Dosage: UNK UNK, BID
     Route: 048
     Dates: start: 202011

REACTIONS (9)
  - Blood pressure abnormal [Unknown]
  - Cough [Unknown]
  - Pericardial effusion [Unknown]
  - Disability [Unknown]
  - Product dose omission issue [Unknown]
  - Hypoacusis [Unknown]
  - Fear [Unknown]
  - Throat clearing [Unknown]
  - Dyspnoea [Unknown]
